FAERS Safety Report 19423759 (Version 3)
Quarter: 2021Q3

REPORT INFORMATION
  Report Type: Spontaneous
  Country: US (occurrence: US)
  Receive Date: 20210616
  Receipt Date: 20210929
  Transmission Date: 20211014
  Serious: Yes (Other)
  Sender: FDA-Public Use
  Company Number: US-PFIZER INC-2021372922

PATIENT
  Age: 58 Year
  Sex: Female

DRUGS (2)
  1. IBRANCE [Suspect]
     Active Substance: PALBOCICLIB
     Dosage: 125 MG
     Dates: start: 20210601, end: 202108
  2. IBRANCE [Suspect]
     Active Substance: PALBOCICLIB
     Indication: BREAST CANCER FEMALE
     Dosage: 125 MG, CYCLIC (125 MG DAILY FOR 21 DAYS ON, 7 DAYS OFF ON A 28?DAY CYCLE)
     Dates: start: 20210326

REACTIONS (10)
  - Decreased appetite [Not Recovered/Not Resolved]
  - Dry mouth [Recovering/Resolving]
  - Weight decreased [Unknown]
  - Neutropenia [Unknown]
  - Dysgeusia [Not Recovered/Not Resolved]
  - Headache [Recovering/Resolving]
  - Abdominal infection [Unknown]
  - Diarrhoea [Recovering/Resolving]
  - Vomiting [Unknown]
  - Fatigue [Recovering/Resolving]

NARRATIVE: CASE EVENT DATE: 2021
